FAERS Safety Report 4688146-4 (Version None)
Quarter: 2005Q2

REPORT INFORMATION
  Report Type: 
  Country: None (occurrence: None)
  Receive Date: 20050610
  Receipt Date: 20041008
  Transmission Date: 20051028
  Serious: Yes (Other)
  Sender: FDA-Public Use
  Company Number: PHEH2004US10906

PATIENT
  Age: 53 Year
  Sex: Male
  Weight: 93 kg

DRUGS (4)
  1. ZOMETA [Suspect]
     Indication: MULTIPLE MYELOMA
     Dosage: 4MG Q4WEEKS
     Dates: start: 20031103
  2. COUMADIN [Concomitant]
     Indication: DEEP VEIN THROMBOSIS
  3. DEXAMETHASONE [Concomitant]
     Indication: MULTIPLE MYELOMA
     Dosage: 20 MG FOR FOUR DAYS EVERY TWO WEEKS
     Dates: start: 20021115, end: 20030317
  4. DEXAMETHASONE [Concomitant]
     Dosage: 20 MG FOR 4 DAYS EVERY TWO WEEKS
     Dates: start: 20030822

REACTIONS (9)
  - ASEPTIC NECROSIS BONE [None]
  - BACTERIAL INFECTION [None]
  - BONE DEBRIDEMENT [None]
  - BONE DISORDER [None]
  - HYPERPLASIA [None]
  - MOUTH ULCERATION [None]
  - MUCOSAL INFLAMMATION [None]
  - OSTEONECROSIS [None]
  - TOOTH EXTRACTION [None]
